FAERS Safety Report 25933277 (Version 1)
Quarter: 2025Q4

REPORT INFORMATION
  Report Type: Spontaneous
  Country: US (occurrence: US)
  Receive Date: 20251017
  Receipt Date: 20251017
  Transmission Date: 20260118
  Serious: No
  Sender: GLAXOSMITHKLINE
  Company Number: US-GSK-US2025126597

PATIENT
  Age: 71 Year
  Sex: Female

DRUGS (3)
  1. VALACYCLOVIR [Suspect]
     Active Substance: VALACYCLOVIR HYDROCHLORIDE
     Indication: Product used for unknown indication
     Dosage: UNK
  2. VALTREX [Suspect]
     Active Substance: VALACYCLOVIR HYDROCHLORIDE
     Indication: Oral herpes
     Dosage: 1000 MG, QD
  3. VALTREX [Suspect]
     Active Substance: VALACYCLOVIR HYDROCHLORIDE
     Indication: Genital herpes
     Dosage: 500 MG, QD
     Dates: start: 202411

REACTIONS (7)
  - Influenza like illness [Recovered/Resolved]
  - Lethargy [Recovered/Resolved]
  - Asthenia [Unknown]
  - Illness [Unknown]
  - Drug intolerance [Unknown]
  - Drug ineffective [Recovered/Resolved]
  - Product dose omission issue [Unknown]
